FAERS Safety Report 4269340-3 (Version None)
Quarter: 2004Q1

REPORT INFORMATION
  Report Type: 
  Country: None (occurrence: None)
  Receive Date: 20040112
  Receipt Date: 20040112
  Transmission Date: 20041129
  Serious: Yes (Hospitalization)
  Sender: FDA-Public Use
  Company Number: None

PATIENT
  Age: 71 Year

DRUGS (7)
  1. ACYCLOVIR [Suspect]
     Indication: HERPES SIMPLEX
     Dosage: 800 QD
  2. BACTRIM [Suspect]
     Indication: CELLULITIS
     Dosage: 1 TAB BID
  3. LISINOPRIL [Concomitant]
  4. COMBIVENT [Concomitant]
  5. INSULIN [Concomitant]
  6. ASPIRIN [Concomitant]
  7. BENADRYL [Concomitant]

REACTIONS (2)
  - RASH [None]
  - RENAL FAILURE ACUTE [None]
